FAERS Safety Report 6392913-9 (Version None)
Quarter: 2009Q4

REPORT INFORMATION
  Report Type: 
  Country: None (occurrence: None)
  Receive Date: 20091007
  Receipt Date: 20090916
  Transmission Date: 20100525
  Serious: No
  Sender: FDA-Public Use
  Company Number: US-ALLERGAN-0912949US

PATIENT
  Age: 45 Year
  Sex: Female

DRUGS (1)
  1. LATISSE [Suspect]
     Indication: GROWTH OF EYELASHES
     Dosage: UNK

REACTIONS (6)
  - BLEPHARITIS [None]
  - DRY EYE [None]
  - ERYTHEMA OF EYELID [None]
  - EYE PRURITUS [None]
  - EYELIDS PRURITUS [None]
  - OCULAR HYPERAEMIA [None]
